FAERS Safety Report 11722416 (Version 1)
Quarter: 2015Q4

REPORT INFORMATION
  Report Type: Spontaneous
  Country: US (occurrence: None)
  Receive Date: 20151110
  Receipt Date: 20151110
  Transmission Date: 20160304
  Serious: Yes (Life-Threatening, Hospitalization)
  Sender: FDA-Public Use
  Company Number: None

PATIENT
  Age: 11 Year
  Sex: Female
  Weight: 31.3 kg

DRUGS (1)
  1. ESCITALOPRAM [Suspect]
     Active Substance: ESCITALOPRAM OXALATE
     Indication: DEPRESSION
     Route: 048
     Dates: start: 20150826, end: 20150901

REACTIONS (7)
  - Memory impairment [None]
  - Intentional self-injury [None]
  - Laceration [None]
  - Staring [None]
  - Suicidal ideation [None]
  - Mood altered [None]
  - Hallucination, auditory [None]

NARRATIVE: CASE EVENT DATE: 20150901
